FAERS Safety Report 7333578-9 (Version None)
Quarter: 2011Q1

REPORT INFORMATION
  Report Type: 
  Country: None (occurrence: None)
  Receive Date: 20110304
  Receipt Date: 20110214
  Transmission Date: 20110831
  Serious: Yes (Disabling)
  Sender: FDA-Public Use
  Company Number: US-MERCK-1102USA03047

PATIENT
  Age: 56 Year
  Sex: Female

DRUGS (5)
  1. SINGULAIR [Concomitant]
     Route: 048
  2. TOPROL-XL [Suspect]
     Indication: GASTROOESOPHAGEAL REFLUX DISEASE
     Route: 048
  3. ZESTRIL [Suspect]
     Route: 048
  4. NEXIUM [Suspect]
     Route: 048
  5. VAGIFEM [Concomitant]
     Route: 065

REACTIONS (2)
  - ROAD TRAFFIC ACCIDENT [None]
  - GASTROOESOPHAGEAL REFLUX DISEASE [None]
